FAERS Safety Report 13754589 (Version 2)
Quarter: 2017Q3

REPORT INFORMATION
  Report Type: Report from Study
  Country: None (occurrence: AR)
  Receive Date: 20170714
  Receipt Date: 20170810
  Transmission Date: 20171127
  Serious: Yes (Disabling, Other)
  Sender: FDA-Public Use
  Company Number: AR-ABBVIE-17K-007-2038999-00

PATIENT
  Sex: Female

DRUGS (1)
  1. HUMIRA [Suspect]
     Active Substance: ADALIMUMAB
     Indication: RHEUMATOID ARTHRITIS
     Route: 058
     Dates: start: 20170615, end: 2017

REACTIONS (5)
  - Mobility decreased [Not Recovered/Not Resolved]
  - Ischaemic stroke [Recovering/Resolving]
  - Influenza [Unknown]
  - Anal incontinence [Unknown]
  - Syncope [Unknown]

NARRATIVE: CASE EVENT DATE: 2017
